FAERS Safety Report 6539431-2 (Version None)
Quarter: 2010Q1

REPORT INFORMATION
  Report Type: 
  Country: None (occurrence: None)
  Receive Date: 20100112
  Receipt Date: 20081203
  Transmission Date: 20100710
  Serious: Yes (Other)
  Sender: FDA-Public Use
  Company Number: WAES 0812USA00913

PATIENT
  Age: 61 Year
  Sex: Female

DRUGS (7)
  1. DECADRON [Suspect]
     Dosage: PO
     Route: 048
     Dates: start: 20080101
  2. THALOMID [Suspect]
     Indication: MULTIPLE MYELOMA
     Dosage: 100 MG/DAILY/PO
     Route: 048
     Dates: start: 20080724, end: 20081001
  3. SYNTHROID [Concomitant]
  4. CALCIUM [Concomitant]
  5. GLIMEPIRIDE [Concomitant]
  6. LISINOPRIL [Concomitant]
  7. METFORMIN HYDROCHLORIDE [Concomitant]

REACTIONS (1)
  - DIABETES MELLITUS INADEQUATE CONTROL [None]
